FAERS Safety Report 9032076 (Version 2)
Quarter: 2013Q2

REPORT INFORMATION
  Report Type: Spontaneous
  Country: FR (occurrence: FR)
  Receive Date: 20130125
  Receipt Date: 20130618
  Transmission Date: 20140414
  Serious: Yes (Death, Hospitalization, Other)
  Sender: FDA-Public Use
  Company Number: FR-009507513-1301FRA008245

PATIENT
  Age: 47 Year
  Sex: Male
  Weight: 88 kg

DRUGS (7)
  1. VICTRELIS [Suspect]
     Indication: HEPATITIS C
     Dosage: 4 DF, TID
     Route: 048
     Dates: start: 20121220, end: 20130110
  2. PEGASYS [Concomitant]
     Indication: HEPATITIS C
     Dosage: 180 MICROGRAM, QW
     Route: 058
     Dates: start: 201212
  3. COPEGUS [Suspect]
     Indication: HEPATITIS C
     Dosage: UNK
     Route: 048
     Dates: start: 20121116
  4. ORACILLINE (PENICILLIN V BENZATHINE) [Concomitant]
     Indication: PRODUCT USED FOR UNKNOWN INDICATION
     Dosage: 1 DF, QD
  5. TRUVADA [Concomitant]
     Indication: HIV INFECTION
     Dosage: UNK
     Dates: start: 1987
  6. REYATAZ [Concomitant]
     Indication: HIV INFECTION
     Dosage: 300 UNK, UNK
     Dates: start: 1987
  7. NORVIR [Concomitant]
     Indication: HIV INFECTION
     Dosage: UNK
     Dates: start: 1987

REACTIONS (6)
  - Pneumonia [Fatal]
  - Septic shock [Fatal]
  - Renal failure [Fatal]
  - Multi-organ failure [Fatal]
  - Cor pulmonale acute [Fatal]
  - Cardiac arrest [Fatal]
